FAERS Safety Report 9306234 (Version 2)
Quarter: 2013Q2

REPORT INFORMATION
  Report Type: Spontaneous
  Country: GB (occurrence: GB)
  Receive Date: 20130523
  Receipt Date: 20130603
  Transmission Date: 20140414
  Serious: Yes (Hospitalization, Other)
  Sender: FDA-Public Use
  Company Number: GB-ASTRAZENECA-2013SE34297

PATIENT
  Age: 67 Year
  Sex: Female

DRUGS (4)
  1. BRILIQUE [Suspect]
     Indication: ACUTE CORONARY SYNDROME
     Route: 048
  2. ASPIRIN [Suspect]
     Indication: ACUTE CORONARY SYNDROME
     Route: 048
  3. SALBUTAMOL [Concomitant]
     Route: 055
  4. TIOTROPIUM [Concomitant]
     Route: 055

REACTIONS (1)
  - Atrioventricular block [Recovered/Resolved]
